FAERS Safety Report 13377151 (Version 1)
Quarter: 2017Q1

REPORT INFORMATION
  Report Type: Spontaneous
  Country: US (occurrence: US)
  Receive Date: 20170328
  Receipt Date: 20170328
  Transmission Date: 20170429
  Serious: Yes (Other)
  Sender: FDA-Public Use
  Company Number: US-SA-2016SA133356

PATIENT

DRUGS (2)
  1. NEULASTA [Suspect]
     Active Substance: PEGFILGRASTIM
     Route: 065
  2. LEUKINE [Suspect]
     Active Substance: SARGRAMOSTIM
     Route: 065

REACTIONS (1)
  - Anaphylactic reaction [Unknown]
